FAERS Safety Report 5700159-X (Version None)
Quarter: 2008Q2

REPORT INFORMATION
  Report Type: 
  Country: None (occurrence: None)
  Receive Date: 20080410
  Receipt Date: 20080402
  Transmission Date: 20081010
  Serious: Yes (Life-Threatening)
  Sender: FDA-Public Use
  Company Number: ES-ABBOTT-08P-144-0445804-00

PATIENT
  Age: 49 Year
  Sex: Male

DRUGS (4)
  1. RITONAVIR SOFT GELATIN CAPSULES [Suspect]
     Indication: HIV INFECTION
     Route: 048
     Dates: start: 20070401
  2. APTIVUS [Suspect]
     Indication: HIV INFECTION
     Route: 048
     Dates: start: 20060101, end: 20070726
  3. NEVIRAPINE [Concomitant]
     Indication: HIV INFECTION
     Route: 048
     Dates: start: 20070401
  4. DIDANOSINE [Concomitant]
     Indication: HIV INFECTION
     Route: 048
     Dates: start: 20070401

REACTIONS (1)
  - CEREBRAL HAEMORRHAGE [None]
